FAERS Safety Report 15234833 (Version 3)
Quarter: 2018Q3

REPORT INFORMATION
  Report Type: Spontaneous
  Country: FR (occurrence: FR)
  Receive Date: 20180803
  Receipt Date: 20180924
  Transmission Date: 20181010
  Serious: Yes (Other)
  Sender: FDA-Public Use
  Company Number: FR-MERCK KGAA-2053152

PATIENT
  Sex: Female

DRUGS (4)
  1. BROMAZEPAM [Concomitant]
     Active Substance: BROMAZEPAM
  2. COTAREG(CO?DIOVAN) [Concomitant]
  3. NAFTIDROFURYL [Concomitant]
     Active Substance: NAFRONYL
  4. EUTHYROX [Suspect]
     Active Substance: LEVOTHYROXINE SODIUM
     Indication: BASEDOW^S DISEASE
     Dates: start: 2017

REACTIONS (8)
  - Speech disorder [Recovering/Resolving]
  - General physical health deterioration [None]
  - Dysphagia [Recovering/Resolving]
  - Amnesia [Recovering/Resolving]
  - Dry skin [Recovering/Resolving]
  - Diarrhoea [Recovering/Resolving]
  - Gastrointestinal disorder [None]
  - Exophthalmos [Recovering/Resolving]
